FAERS Safety Report 6524408-3 (Version None)
Quarter: 2010Q1

REPORT INFORMATION
  Report Type: 
  Country: None (occurrence: None)
  Receive Date: 20100102
  Receipt Date: 20091221
  Transmission Date: 20100710
  Serious: Yes (Other)
  Sender: FDA-Public Use
  Company Number: PHHY2009JP47495

PATIENT
  Age: 18 Year
  Sex: Male

DRUGS (5)
  1. TEGRETOL [Suspect]
     Indication: EPILEPSY
     Dosage: UNK
     Route: 048
  2. ALEVIATIN [Suspect]
     Indication: EPILEPSY
     Dosage: UNK
     Route: 048
  3. HYDANTOL [Suspect]
     Indication: EPILEPSY
     Dosage: UNK
     Route: 048
  4. DEPAKENE [Concomitant]
     Indication: EPILEPSY
     Dosage: UNK
  5. PHENOBARBITAL TAB [Concomitant]
     Indication: EPILEPSY
     Dosage: UNK
     Route: 048

REACTIONS (20)
  - BRAIN OPERATION [None]
  - CONVULSION [None]
  - DENTAL CARIES [None]
  - DENTAL OPERATION [None]
  - DENTAL PLAQUE [None]
  - EPILEPSY [None]
  - GINGIVAL HYPERPLASIA [None]
  - GINGIVAL OEDEMA [None]
  - GINGIVAL SWELLING [None]
  - GINGIVITIS [None]
  - HYPOKINESIA [None]
  - PARALYSIS [None]
  - PERIODONTAL OPERATION [None]
  - PERIODONTITIS [None]
  - SURGERY [None]
  - TOOTH DEPOSIT [None]
  - TOOTH DISCOLOURATION [None]
  - TOOTH EROSION [None]
  - TOOTH LOSS [None]
  - TOOTH RESORPTION [None]
